FAERS Safety Report 7080927-5 (Version None)
Quarter: 2010Q4

REPORT INFORMATION
  Report Type: 
  Country: None (occurrence: None)
  Receive Date: 20101103
  Receipt Date: 20101025
  Transmission Date: 20110411
  Serious: Yes (Other)
  Sender: FDA-Public Use
  Company Number: FR-JNJFOC-20100907007

PATIENT
  Age: 43 Year
  Sex: Female
  Weight: 108 kg

DRUGS (11)
  1. REMICADE [Suspect]
     Indication: PSORIASIS
     Route: 042
  2. REMICADE [Suspect]
     Route: 042
  3. REMICADE [Suspect]
     Route: 042
  4. REMICADE [Suspect]
     Route: 042
  5. REMICADE [Suspect]
     Route: 042
  6. REMICADE [Suspect]
     Route: 042
  7. REMICADE [Suspect]
     Route: 042
  8. METOJECT [Concomitant]
     Indication: PSORIASIS
     Route: 058
  9. OLMETEC [Concomitant]
     Indication: HYPERTENSION
     Route: 048
  10. ISOPTIN [Concomitant]
     Indication: HYPERTENSION
     Route: 048
  11. PAROXETINE HCL [Concomitant]
     Indication: DEPRESSION
     Route: 048

REACTIONS (3)
  - HYPERCHOLESTEROLAEMIA [None]
  - HYPOACUSIS [None]
  - TINNITUS [None]
